FAERS Safety Report 25738622 (Version 1)
Quarter: 2025Q3

REPORT INFORMATION
  Report Type: Spontaneous
  Country: US (occurrence: US)
  Receive Date: 20250829
  Receipt Date: 20250829
  Transmission Date: 20251021
  Serious: No
  Sender: MDD OPERATIONS
  Company Number: US-MDD US Operations-MDD202506-002198

PATIENT
  Age: 66 Year
  Sex: Male

DRUGS (9)
  1. ONAPGO [Suspect]
     Active Substance: APOMORPHINE HYDROCHLORIDE
     Indication: Parkinson^s disease
     Dosage: OVER 16-HOUR INFUSION
     Dates: start: 20250618
  2. ONAPGO [Suspect]
     Active Substance: APOMORPHINE HYDROCHLORIDE
     Dates: start: 202506
  3. ONAPGO [Suspect]
     Active Substance: APOMORPHINE HYDROCHLORIDE
     Dates: start: 2025
  4. CREXONT [Concomitant]
     Active Substance: CARBIDOPA\LEVODOPA
  5. DROXIDOPA [Concomitant]
     Active Substance: DROXIDOPA
  6. MIDODRINE [Concomitant]
     Active Substance: MIDODRINE
  7. FLUDROCORTISONE [Concomitant]
     Active Substance: FLUDROCORTISONE
  8. LEVOTHYROXINE [Concomitant]
     Active Substance: LEVOTHYROXINE
  9. LEXAPRO [Concomitant]
     Active Substance: ESCITALOPRAM OXALATE

REACTIONS (6)
  - Dizziness [Not Recovered/Not Resolved]
  - Nausea [Unknown]
  - Dyskinesia [Recovering/Resolving]
  - Fatigue [Recovering/Resolving]
  - Somnolence [Recovered/Resolved]
  - Device leakage [Unknown]

NARRATIVE: CASE EVENT DATE: 20250101
